FAERS Safety Report 11756458 (Version 1)
Quarter: 2015Q4

REPORT INFORMATION
  Report Type: Spontaneous
  Country: US (occurrence: US)
  Receive Date: 20151119
  Receipt Date: 20151119
  Transmission Date: 20160304
  Serious: No
  Sender: FDA-Public Use
  Company Number: US-ALLERGAN-1421921US

PATIENT
  Age: 74 Year
  Sex: Male

DRUGS (1)
  1. COMBIGAN [Suspect]
     Active Substance: BRIMONIDINE TARTRATE\TIMOLOL MALEATE
     Indication: PRODUCT USED FOR UNKNOWN INDICATION
     Dosage: UNK
     Route: 047
     Dates: start: 20140730, end: 201408

REACTIONS (5)
  - Hypersensitivity [Unknown]
  - Pupillary disorder [Unknown]
  - Eye irritation [Unknown]
  - Rash [Unknown]
  - Swelling face [Unknown]
